FAERS Safety Report 7023015-6 (Version None)
Quarter: 2010Q3

REPORT INFORMATION
  Report Type: 
  Country: None (occurrence: None)
  Receive Date: 20100930
  Receipt Date: 20100913
  Transmission Date: 20110219
  Serious: Yes (Other)
  Sender: FDA-Public Use
  Company Number: US-BAYER-201010692NA

PATIENT
  Age: 51 Year
  Sex: Female
  Weight: 65 kg

DRUGS (5)
  1. YASMIN [Suspect]
     Indication: HOT FLUSH
     Route: 048
     Dates: start: 20061201, end: 20090101
  2. AMBIEN CR [Concomitant]
     Dates: start: 20070101
  3. WELLBUTRIN [Concomitant]
     Dates: start: 20070101
  4. TRAZODONE HCL [Concomitant]
     Dates: start: 20070101
  5. IBUPROFEN [Concomitant]

REACTIONS (3)
  - DEEP VEIN THROMBOSIS [None]
  - JOINT SWELLING [None]
  - PAIN IN EXTREMITY [None]
